FAERS Safety Report 24670833 (Version 4)
Quarter: 2024Q4

REPORT INFORMATION
  Report Type: Report from Study
  Country: CO (occurrence: CO)
  Receive Date: 20241127
  Receipt Date: 20241227
  Transmission Date: 20250115
  Serious: Yes (Hospitalization)
  Sender: KYOWA
  Company Number: CO-KYOWAKIRIN-2024KK026867

PATIENT

DRUGS (5)
  1. CRYSVITA [Suspect]
     Active Substance: BUROSUMAB-TWZA
     Indication: Hereditary hypophosphataemic rickets
     Dosage: 10 MILLIGRAM, EVERY 15 DAYS
     Route: 058
     Dates: start: 20241002, end: 20241113
  2. CRYSVITA [Suspect]
     Active Substance: BUROSUMAB-TWZA
     Dosage: 10 MILLIGRAM, EVERY 15 DAYS
     Route: 058
     Dates: start: 20240530, end: 20240711
  3. CRYSVITA [Suspect]
     Active Substance: BUROSUMAB-TWZA
     Dosage: 10 MILLIGRAM, EVERY 15 DAYS
     Route: 058
     Dates: start: 20240729, end: 20240909
  4. CRYSVITA [Suspect]
     Active Substance: BUROSUMAB-TWZA
     Dosage: 10 MILLIGRAM, EVERY 15 DAYS
     Route: 058
     Dates: start: 20241204, end: 20241204
  5. CRYSVITA [Suspect]
     Active Substance: BUROSUMAB-TWZA
     Dosage: 10 MILLIGRAM, EVERY 15 DAYS
     Route: 058
     Dates: start: 20241218

REACTIONS (2)
  - Laboratory test abnormal [Recovered/Resolved]
  - Pyrexia [Recovered/Resolved]

NARRATIVE: CASE EVENT DATE: 20241118
